FAERS Safety Report 8164992-X (Version None)
Quarter: 2012Q1

REPORT INFORMATION
  Report Type: 
  Country: None (occurrence: None)
  Receive Date: 20120227
  Receipt Date: 20120213
  Transmission Date: 20120608
  Serious: Yes (Hospitalization)
  Sender: FDA-Public Use
  Company Number: BR-AMGEN-BRASP2012010651

PATIENT
  Age: 59 Year
  Sex: Male
  Weight: 90 kg

DRUGS (5)
  1. METHOTREXATE [Concomitant]
     Dosage: UNK
     Route: 065
  2. ACETAMINOPHEN [Concomitant]
     Dosage: UNK
  3. TYLEX                              /00116401/ [Concomitant]
     Dosage: UNK
  4. ENBREL [Suspect]
     Indication: RHEUMATOID ARTHRITIS
     Dosage: 25MG TWICE WEEKLY
     Route: 058
     Dates: start: 20100414
  5. PREDNISONE [Concomitant]
     Dosage: UNK

REACTIONS (1)
  - ARTHRITIS [None]
